FAERS Safety Report 19974193 (Version 1)
Quarter: 2021Q4

REPORT INFORMATION
  Report Type: Report from Study
  Country: SE (occurrence: SE)
  Receive Date: 20211020
  Receipt Date: 20211020
  Transmission Date: 20220303
  Serious: Yes (Other)
  Sender: FDA-Public Use
  Company Number: SE-NOVARTISPH-PHHY2014SE114903

PATIENT
  Sex: Female

DRUGS (7)
  1. OMNITROPE [Suspect]
     Active Substance: SOMATROPIN
     Indication: Growth hormone deficiency
     Dosage: 0.3 DF (5 MG/1.5 ML SOLUTION FOR INJECTION)
     Route: 058
     Dates: start: 20121029
  2. ACTIVELLE [Concomitant]
     Active Substance: ESTRADIOL\NORETHINDRONE ACETATE
     Indication: Growth hormone deficiency
     Dosage: UNK
     Route: 048
     Dates: start: 2011
  3. HYDROCORTISONE [Concomitant]
     Active Substance: HYDROCORTISONE
     Indication: Growth hormone deficiency
     Dosage: UNK
     Route: 048
     Dates: start: 2009
  4. LEVOTHYROXINE SODIUM [Concomitant]
     Active Substance: LEVOTHYROXINE SODIUM
     Indication: Growth hormone deficiency
     Dosage: UNK
     Route: 048
     Dates: start: 2010
  5. OMEPRAZOLE [Concomitant]
     Active Substance: OMEPRAZOLE
     Indication: Prophylaxis
     Dosage: UNK
     Route: 048
     Dates: start: 20101206
  6. TESTOSTERONE [Concomitant]
     Active Substance: TESTOSTERONE
     Indication: Growth hormone deficiency
     Dosage: UNK
     Route: 061
     Dates: start: 20130916
  7. SODIUM [Concomitant]
     Active Substance: SODIUM
     Indication: Prophylaxis
     Dosage: UNK
     Route: 048
     Dates: start: 2012

REACTIONS (5)
  - Obesity [Unknown]
  - Brain neoplasm [Not Recovered/Not Resolved]
  - Neoplasm progression [Not Recovered/Not Resolved]
  - Gastroenteritis [Recovered/Resolved]
  - Cerebral cyst [Not Recovered/Not Resolved]

NARRATIVE: CASE EVENT DATE: 20130207
